FAERS Safety Report 9160476 (Version 2)
Quarter: 2013Q1

REPORT INFORMATION
  Report Type: Spontaneous
  Country: US (occurrence: None)
  Receive Date: 20130219
  Receipt Date: 20130320
  Transmission Date: 20140127
  Serious: Yes (Life-Threatening, Hospitalization, Other)
  Sender: FDA-Public Use
  Company Number: ACO_34290_2013

PATIENT
  Age: 76 Year
  Sex: Male
  Weight: 88 kg

DRUGS (6)
  1. AMPYRA [Suspect]
     Indication: MULTIPLE SCLEROSIS
     Route: 048
     Dates: start: 20120517, end: 20121118
  2. NUVIGIL (ARMODAFINIL) [Concomitant]
  3. BACLOFEN (BACLOFEN) [Concomitant]
  4. HYTRIN (TERAZOSIN HYDROCHLORIDE) [Concomitant]
  5. TRAMADOL (TRAMADOL HYDROCHLORIDE) [Concomitant]
  6. ZOLOFT (SERTRALINE HYDROCHLORIDE) [Concomitant]

REACTIONS (6)
  - Head injury [None]
  - Subdural haemorrhage [None]
  - Fall [None]
  - Fatigue [None]
  - Inappropriate schedule of drug administration [None]
  - Subdural haematoma [None]
